FAERS Safety Report 8799162 (Version 1)
Quarter: 2012Q4

REPORT INFORMATION
  Report Type: 
  Country: US (occurrence: US)
  Receive Date: 20120920
  Receipt Date: 20120920
  Transmission Date: 20130627
  Serious: No
  Sender: FDA-Public Use
  Company Number: US-ASTRAZENECA-2012SE14977

PATIENT
  Age: 38 Year
  Sex: Female
  Weight: 74 kg

DRUGS (21)
  1. LISINOPRIL [Suspect]
     Route: 048
     Dates: start: 20110118
  2. ASPIRIN [Concomitant]
  3. B COMPLEX VITAMINS [Concomitant]
  4. KLONOPIN [Concomitant]
  5. PREDNISONE [Concomitant]
  6. LANTUS [Concomitant]
  7. HUMALOG KWIKPEN [Concomitant]
  8. FLUOXETINE [Concomitant]
  9. VITAMIN E [Concomitant]
  10. HYDROCODONE-ACETAMINOPHEN [Concomitant]
  11. PROZAC [Concomitant]
  12. ZOCOR [Concomitant]
  13. LORATADINE [Concomitant]
  14. SINGULAIR [Concomitant]
  15. VERAPAMIL [Concomitant]
  16. MULTI-BETIC [Concomitant]
  17. VENTOLIN [Concomitant]
  18. METHOTREXATE [Concomitant]
  19. NIASPAN [Concomitant]
  20. SYMBICORT [Concomitant]
  21. IPRATROPIUM 0.02 % [Concomitant]

REACTIONS (2)
  - Pain [Unknown]
  - Respiratory distress [Unknown]
